FAERS Safety Report 23263045 (Version 1)
Quarter: 2023Q4

REPORT INFORMATION
  Report Type: Spontaneous
  Country: BR (occurrence: BR)
  Receive Date: 20231205
  Receipt Date: 20231205
  Transmission Date: 20240110
  Serious: Yes (Other)
  Sender: FDA-Public Use
  Company Number: BR-SA-SAC20231204000983

PATIENT
  Age: 39 Year
  Sex: Female

DRUGS (1)
  1. LEMTRADA [Suspect]
     Active Substance: ALEMTUZUMAB
     Indication: Relapsing-remitting multiple sclerosis
     Dosage: 5 DF
     Route: 065
     Dates: start: 20231023, end: 20231027

REACTIONS (3)
  - Bradycardia [Unknown]
  - Anaphylactic reaction [Unknown]
  - Cough [Unknown]

NARRATIVE: CASE EVENT DATE: 20230101
